FAERS Safety Report 22675699 (Version 6)
Quarter: 2023Q4

REPORT INFORMATION
  Report Type: Spontaneous
  Country: CA (occurrence: CA)
  Receive Date: 20230706
  Receipt Date: 20231028
  Transmission Date: 20240110
  Serious: Yes (Hospitalization, Other)
  Sender: FDA-Public Use
  Company Number: CA-CELLTRION INC.-2023CA013507

PATIENT

DRUGS (12)
  1. INFLECTRA [Suspect]
     Active Substance: INFLIXIMAB-DYYB
     Indication: Colitis ulcerative
     Dosage: 300 MG, WKS 0,2,6 THEN Q 8 WEEKS, (WEEK 6 RECEIVED AT THE HOSPITAL UNKNOWN DOSE GREATER THAN 300MG)
     Route: 042
     Dates: start: 20230526
  2. INFLECTRA [Suspect]
     Active Substance: INFLIXIMAB-DYYB
     Dosage: 300 MG, WEEKS 0,2,6 THEN Q 8 WEEKS
     Route: 042
     Dates: start: 20230610
  3. INFLECTRA [Suspect]
     Active Substance: INFLIXIMAB-DYYB
     Dosage: 300 MG, WEEKS 0,2,6 THEN Q 8 WEEKS (WEEK 6 RECEIVED AT THE HOSPITAL UNKNOWN DOSE GREATER THAN 300MG)
     Route: 042
     Dates: start: 20230629
  4. INFLECTRA [Suspect]
     Active Substance: INFLIXIMAB-DYYB
     Dosage: 600 MG (10MG/KG) RESCUE DOSE
     Route: 042
     Dates: start: 20230709, end: 20230709
  5. INFLECTRA [Suspect]
     Active Substance: INFLIXIMAB-DYYB
     Dosage: 600 MG, EVERY 4 WEEKS
     Route: 042
     Dates: start: 20230803, end: 20230929
  6. BREVICON [Concomitant]
     Active Substance: ETHINYL ESTRADIOL\NORETHINDRONE
     Dosage: 1 DF
  7. PREDNISONE [Concomitant]
     Active Substance: PREDNISONE
     Dosage: 1 DF
  8. PREDNISONE [Concomitant]
     Active Substance: PREDNISONE
     Dosage: 30 MG
     Route: 048
     Dates: start: 2023
  9. PREDNISONE [Concomitant]
     Active Substance: PREDNISONE
     Dosage: 50 MG, FOR 2 WEEKS THEN TAPER
     Dates: start: 2023
  10. PANTOPRAZOLE [Concomitant]
     Active Substance: PANTOPRAZOLE
     Dosage: 40 MG PO, DAILY, FOR 1 MONTH
     Route: 048
     Dates: start: 2023
  11. MESALAMINE [Concomitant]
     Active Substance: MESALAMINE
     Dosage: 2X/DAY, TAKING SALOFALK SUPPOSITORY TWICE A DAY
     Dates: start: 2023
  12. SULFATRIM [Concomitant]
     Active Substance: SULFAMETHOXAZOLE\TRIMETHOPRIM
     Indication: Prophylaxis
     Dosage: 160 MG PO, FOR 3 WEEKS
     Route: 048
     Dates: start: 2023

REACTIONS (5)
  - Condition aggravated [Recovering/Resolving]
  - Drug ineffective [Unknown]
  - Off label use [Unknown]
  - Off label use [Unknown]
  - Intentional product use issue [Unknown]

NARRATIVE: CASE EVENT DATE: 20230101
